FAERS Safety Report 6230886-X (Version None)
Quarter: 2009Q2

REPORT INFORMATION
  Report Type: 
  Country: None (occurrence: None)
  Receive Date: 20090616
  Receipt Date: 20090604
  Transmission Date: 20091009
  Serious: Yes (Other)
  Sender: FDA-Public Use
  Company Number: PHHY2009JP20739

PATIENT
  Age: 54 Year
  Sex: Male

DRUGS (4)
  1. CYCLOSPORINE [Suspect]
     Indication: STEM CELL TRANSPLANT
     Dosage: UNK
     Dates: start: 20050101
  2. FLUDARABINE PHOSPHATE [Concomitant]
     Dosage: UNK
     Dates: start: 20050101
  3. L-PAM [Concomitant]
     Dosage: UNK
     Dates: start: 20050101
  4. STEROIDS NOS [Concomitant]
     Indication: GRAFT VERSUS HOST DISEASE
     Dosage: PULSE THERAPY
     Route: 048

REACTIONS (5)
  - ACUTE GRAFT VERSUS HOST DISEASE [None]
  - CHRONIC GRAFT VERSUS HOST DISEASE [None]
  - LUNG DISORDER [None]
  - MYELOMA RECURRENCE [None]
  - PLASMACYTOMA [None]
